FAERS Safety Report 6128079-X (Version None)
Quarter: 2009Q1

REPORT INFORMATION
  Report Type: 
  Country: None (occurrence: None)
  Receive Date: 20090323
  Receipt Date: 20090317
  Transmission Date: 20090719
  Serious: Yes (Other)
  Sender: FDA-Public Use
  Company Number: CA-PFIZER INC-2009185154

PATIENT

DRUGS (5)
  1. LIPITOR [Suspect]
     Route: 048
  2. SERTRALINE HYDROCHLORIDE [Concomitant]
     Dosage: 100 MG, UNK
  3. ACETYLSALICYLIC ACID [Concomitant]
     Dosage: 325 MG, UNK
  4. BISOPROLOL [Concomitant]
     Dosage: 5 MG, UNK
  5. RAMIPRIL [Concomitant]
     Dosage: 10 MG, UNK

REACTIONS (1)
  - TYPE 2 DIABETES MELLITUS [None]
